FAERS Safety Report 11191238 (Version 1)
Quarter: 2015Q2

REPORT INFORMATION
  Report Type: Spontaneous
  Country: DK (occurrence: DK)
  Receive Date: 20150615
  Receipt Date: 20150615
  Transmission Date: 20150821
  Serious: Yes (Hospitalization)
  Sender: FDA-Public Use
  Company Number: DK-MERCK-1506DNK006326

PATIENT
  Age: 69 Year
  Sex: Female
  Weight: 70 kg

DRUGS (1)
  1. NOXAFIL [Suspect]
     Active Substance: POSACONAZOLE
     Indication: ORAL FUNGAL INFECTION
     Dosage: 100 MG, TID
     Route: 048
     Dates: start: 20150331, end: 20150406

REACTIONS (8)
  - Hepatic function abnormal [Unknown]
  - Myalgia [Unknown]
  - Mental disorder [Recovering/Resolving]
  - Hyponatraemia [Unknown]
  - Arthralgia [Unknown]
  - Renal impairment [Unknown]
  - Rash [Unknown]
  - Decreased appetite [Unknown]

NARRATIVE: CASE EVENT DATE: 20150401
